FAERS Safety Report 10198307 (Version 1)
Quarter: 2014Q2

REPORT INFORMATION
  Report Type: Spontaneous
  Country: US (occurrence: US)
  Receive Date: 20140527
  Receipt Date: 20140527
  Transmission Date: 20141212
  Serious: No
  Sender: FDA-Public Use
  Company Number: US-NOVEN-13US008027

PATIENT
  Age: 13 Year
  Sex: Male

DRUGS (1)
  1. DAYTRANA [Suspect]
     Indication: PRODUCT USED FOR UNKNOWN INDICATION
     Dosage: 10 MG, UNK
     Route: 062
     Dates: start: 2012

REACTIONS (5)
  - Disturbance in attention [Unknown]
  - Disturbance in social behaviour [Unknown]
  - Psychomotor hyperactivity [Unknown]
  - Wrong technique in drug usage process [Unknown]
  - Product quality issue [Not Recovered/Not Resolved]
